FAERS Safety Report 12396577 (Version 1)
Quarter: 2016Q2

REPORT INFORMATION
  Report Type: Spontaneous
  Country: US (occurrence: US)
  Receive Date: 20160524
  Receipt Date: 20160524
  Transmission Date: 20160815
  Serious: Yes (Hospitalization, Other)
  Sender: FDA-Public Use
  Company Number: US-DRREDDYS-USA/USA/16/0079981

PATIENT
  Age: 17 Year
  Sex: Female

DRUGS (4)
  1. METOPROLOL SUCCINATE. [Suspect]
     Active Substance: METOPROLOL SUCCINATE
     Indication: PRODUCT USED FOR UNKNOWN INDICATION
  2. ATENOLOL. [Concomitant]
     Active Substance: ATENOLOL
     Route: 065
  3. ATENOLOL. [Concomitant]
     Active Substance: ATENOLOL
     Dosage: 25 MG IN THE MORNING AND 50 MG IN THE EVENING
     Route: 065
  4. METOPROLOL SUCCINATE. [Suspect]
     Active Substance: METOPROLOL SUCCINATE

REACTIONS (5)
  - Postpartum depression [Unknown]
  - Arrhythmia [Recovered/Resolved]
  - Malaise [Recovered/Resolved]
  - Exposure during pregnancy [Unknown]
  - Dizziness [Recovered/Resolved]
